FAERS Safety Report 13660324 (Version 1)
Quarter: 2017Q2

REPORT INFORMATION
  Report Type: Report from Study
  Country: FR (occurrence: FR)
  Receive Date: 20170616
  Receipt Date: 20170616
  Transmission Date: 20170830
  Serious: Yes (Death)
  Sender: FDA-Public Use
  Company Number: FR-PFIZER INC-2017141819

PATIENT

DRUGS (20)
  1. VINCRISTINE SULFATE. [Suspect]
     Active Substance: VINCRISTINE SULFATE
     Dosage: 1.4 MG/M2 (J109)
     Route: 042
  2. PROCARBAZINE [Suspect]
     Active Substance: PROCARBAZINE
     Indication: SMALL CELL LUNG CANCER
     Dosage: 100 MG/M2 FROM D42 TO D52
     Route: 048
  3. LOMUSTINE. [Suspect]
     Active Substance: LOMUSTINE
     Dosage: 50 MG/M2 (D42)
     Route: 048
  4. LOMUSTINE. [Suspect]
     Active Substance: LOMUSTINE
     Dosage: 50 MG/M2 (D126)
     Route: 048
  5. METHOTREXATE SODIUM. [Suspect]
     Active Substance: METHOTREXATE SODIUM
     Indication: SMALL CELL LUNG CANCER
     Dosage: UNK
  6. CYCLOPHOSPHAMIDE. [Suspect]
     Active Substance: CYCLOPHOSPHAMIDE
     Indication: SMALL CELL LUNG CANCER
     Dosage: UNK
  7. CYCLOPHOSPHAMIDE. [Suspect]
     Active Substance: CYCLOPHOSPHAMIDE
     Dosage: 1500 MG/M2 (D1)
     Route: 042
  8. VINCRISTINE SULFATE. [Suspect]
     Active Substance: VINCRISTINE SULFATE
     Dosage: 1.4 MG/M2 (D84)
     Route: 042
  9. ADRIAMYCIN [Suspect]
     Active Substance: DOXORUBICIN HYDROCHLORIDE
     Indication: SMALL CELL LUNG CANCER
     Dosage: 60 MG/M2 (D84)
     Route: 042
  10. ADRIAMYCIN [Suspect]
     Active Substance: DOXORUBICIN HYDROCHLORIDE
     Dosage: 60 MG/M2 (J109)
     Route: 042
  11. CYCLOPHOSPHAMIDE. [Suspect]
     Active Substance: CYCLOPHOSPHAMIDE
     Dosage: 1000 MG/M2 (D21)
     Route: 042
  12. CYCLOPHOSPHAMIDE. [Suspect]
     Active Substance: CYCLOPHOSPHAMIDE
     Dosage: 500 MG/M2 (J68)
     Route: 042
  13. METHOTREXATE SODIUM. [Suspect]
     Active Substance: METHOTREXATE SODIUM
     Dosage: 15 MG/M2 2X/WEEK FOR 5 WEEKS (D1)
     Route: 048
  14. CYCLOPHOSPHAMIDE. [Suspect]
     Active Substance: CYCLOPHOSPHAMIDE
     Dosage: 500 MG/M2 (D42)
     Route: 042
  15. CYCLOPHOSPHAMIDE. [Suspect]
     Active Substance: CYCLOPHOSPHAMIDE
     Dosage: 500 MG/M2 (D126)
     Route: 042
  16. LOMUSTINE. [Suspect]
     Active Substance: LOMUSTINE
     Indication: SMALL CELL LUNG CANCER
     Dosage: 100 MG/M2 (D1)
     Route: 048
  17. METHOTREXATE SODIUM. [Suspect]
     Active Substance: METHOTREXATE SODIUM
     Dosage: 10 MG/M2 2X/WEEK FOR 5 WEEKS (D42)
     Route: 048
  18. PROCARBAZINE [Suspect]
     Active Substance: PROCARBAZINE
     Dosage: 100 MG/M2 (J109)
     Route: 048
  19. METHOTREXATE SODIUM. [Suspect]
     Active Substance: METHOTREXATE SODIUM
     Dosage: 10 MG/M2 2X/WEEK FOR 5 WEEKS (D126)
     Route: 048
  20. VINCRISTINE SULFATE. [Suspect]
     Active Substance: VINCRISTINE SULFATE
     Indication: SMALL CELL LUNG CANCER
     Dosage: UNK

REACTIONS (2)
  - Meningitis candida [Fatal]
  - Meningitis aseptic [Fatal]
